FAERS Safety Report 15849733 (Version 1)
Quarter: 2019Q1

REPORT INFORMATION
  Report Type: Report from Study
  Country: CA (occurrence: CA)
  Receive Date: 20190121
  Receipt Date: 20190121
  Transmission Date: 20190417
  Serious: Yes (Death, Other)
  Sender: FDA-Public Use
  Company Number: CA-MYLANLABS-2018M1054590

PATIENT
  Age: 71 Year
  Sex: Female

DRUGS (1)
  1. CLOZAPINE. [Suspect]
     Active Substance: CLOZAPINE
     Indication: PRODUCT USED FOR UNKNOWN INDICATION
     Dosage: UNK
     Dates: start: 201209

REACTIONS (3)
  - Obesity [Unknown]
  - Mobility decreased [Unknown]
  - Aspiration [Fatal]

NARRATIVE: CASE EVENT DATE: 20180701
